FAERS Safety Report 15602582 (Version 3)
Quarter: 2019Q2

REPORT INFORMATION
  Report Type: Spontaneous
  Country: US (occurrence: US)
  Receive Date: 20181109
  Receipt Date: 20190628
  Transmission Date: 20190711
  Serious: No
  Sender: FDA-Public Use
  Company Number: US-SA-2018SA305751

PATIENT
  Age: 58 Year
  Sex: Female

DRUGS (1)
  1. AUBAGIO [Suspect]
     Active Substance: TERIFLUNOMIDE
     Indication: MULTIPLE SCLEROSIS
     Dosage: 14 MG, QD
     Route: 048
     Dates: start: 20181012

REACTIONS (8)
  - Productive cough [Unknown]
  - Speech disorder [Unknown]
  - Arthropod bite [Not Recovered/Not Resolved]
  - Respiratory tract congestion [Unknown]
  - Nausea [Unknown]
  - Exercise tolerance decreased [Unknown]
  - Alopecia [Unknown]
  - Unevaluable event [Unknown]

NARRATIVE: CASE EVENT DATE: 20190226
